FAERS Safety Report 8419492-6 (Version None)
Quarter: 2012Q2

REPORT INFORMATION
  Report Type: 
  Country: None (occurrence: None)
  Receive Date: 20120607
  Receipt Date: 20120525
  Transmission Date: 20120825
  Serious: Yes (Hospitalization, Other)
  Sender: FDA-Public Use
  Company Number: US-VIROPHARMA INCORPORATED-20120509CINRY2954

PATIENT
  Sex: Male
  Weight: 104.87 kg

DRUGS (3)
  1. BERINERT [Suspect]
     Indication: HEREDITARY ANGIOEDEMA
     Dosage: UNKNOWN
     Route: 065
  2. UNSPECIFED INSULIN [Concomitant]
     Indication: TYPE 1 DIABETES MELLITUS
     Dosage: DOSAGE DEPENDENT ON BLOOD SUGAR LEVELS
     Route: 058
  3. CINRYZE [Suspect]
     Indication: HEREDITARY ANGIOEDEMA
     Dates: start: 20111001

REACTIONS (5)
  - STAPHYLOCOCCAL INFECTION [None]
  - CATHETER SITE INFECTION [None]
  - DEVICE RELATED INFECTION [None]
  - HEREDITARY ANGIOEDEMA [None]
  - THROMBOSIS [None]
